FAERS Safety Report 4912497-9 (Version None)
Quarter: 2006Q1

REPORT INFORMATION
  Report Type: 
  Country: None (occurrence: None)
  Receive Date: 20060215
  Receipt Date: 20050520
  Transmission Date: 20060701
  Serious: No
  Sender: FDA-Public Use
  Company Number: US-GLAXOSMITHKLINE-A0559558A

PATIENT
  Age: 62 Year
  Sex: Female

DRUGS (6)
  1. VALTREX [Suspect]
     Dosage: 1G PER DAY
     Route: 048
     Dates: start: 20050517, end: 20050517
  2. REQUIP [Concomitant]
     Indication: PARKINSON'S DISEASE
     Dosage: 3MG UNKNOWN
     Route: 048
  3. FLEXERIL [Concomitant]
  4. NABUMETONE [Concomitant]
  5. SINEMET [Concomitant]
  6. SINEMET CR [Concomitant]

REACTIONS (4)
  - FATIGUE [None]
  - NECK PAIN [None]
  - NIGHTMARE [None]
  - PSYCHOMOTOR HYPERACTIVITY [None]
